FAERS Safety Report 12252860 (Version 2)
Quarter: 2016Q2

REPORT INFORMATION
  Report Type: Report from Study
  Country: US (occurrence: US)
  Receive Date: 20160411
  Receipt Date: 20160505
  Transmission Date: 20160815
  Serious: Yes (Death, Other)
  Sender: FDA-Public Use
  Company Number: US-PFIZER INC-2016197849

PATIENT
  Age: 16 Year
  Sex: Female

DRUGS (2)
  1. TETRACYCLINE HCL [Suspect]
     Active Substance: TETRACYCLINE HYDROCHLORIDE
     Indication: PYELONEPHRITIS
     Dosage: AVERAGE OF 2.4 G (RANGE 1.5 G TO 3.5 G)
     Route: 042
  2. TETRACYCLINE HCL [Suspect]
     Active Substance: TETRACYCLINE HYDROCHLORIDE
     Indication: PYELONEPHRITIS
     Dosage: 1 G, DAILY
     Route: 048

REACTIONS (2)
  - Abortion spontaneous [Unknown]
  - Liver disorder [Fatal]
